FAERS Safety Report 8878763 (Version 5)
Quarter: 2014Q1

REPORT INFORMATION
  Report Type: Report from Study
  Country: BR (occurrence: BR)
  Receive Date: 20121026
  Receipt Date: 20140219
  Transmission Date: 20141002
  Serious: Yes (Other)
  Sender: FDA-Public Use
  Company Number: PHHY2012BR096386

PATIENT
  Sex: Female

DRUGS (10)
  1. ACLASTA [Suspect]
     Indication: OSTEOPOROSIS
     Dosage: 5MG/100ML PER YEAR
     Route: 042
     Dates: start: 2012
  2. ACLASTA [Suspect]
     Dosage: 5MG/100ML PER YEAR
     Route: 042
  3. DEPURA [Concomitant]
     Indication: OSTEOPOROSIS
     Dosage: 40 DRP, A WEEK
     Route: 048
  4. CALTRATE D [Concomitant]
     Indication: OSTEOPOROSIS
     Dosage: 1 TABLET A DAY
     Route: 048
  5. ARADOIS [Concomitant]
     Indication: BLOOD PRESSURE INCREASED
     Dosage: 20 MG, UNK
  6. PAROXETINE [Concomitant]
     Indication: DEPRESSION
     Dosage: 50 MG, UNK
     Dates: start: 2012
  7. OMEPRAZOLE [Concomitant]
     Dosage: UNK UKN, UNK
  8. SYNTHROID [Concomitant]
     Indication: THYROID DISORDER
     Dosage: 75 UG, UNK
     Dates: start: 2011
  9. ATORVASTATINE//ATORVASTATIN [Concomitant]
     Indication: BLOOD CHOLESTEROL
     Dosage: 40 MG, UNK
  10. EZETIMIBA [Concomitant]
     Dosage: UNK

REACTIONS (9)
  - Aphonia [Recovered/Resolved]
  - Abasia [Recovered/Resolved]
  - Malaise [Recovered/Resolved]
  - Feeling abnormal [Recovered/Resolved]
  - Influenza [Recovered/Resolved]
  - Arthralgia [Recovered/Resolved]
  - Pain in extremity [Recovered/Resolved]
  - Gastrooesophageal reflux disease [Recovered/Resolved]
  - Dyspnoea [Recovered/Resolved]
